FAERS Safety Report 22252716 (Version 1)
Quarter: 2023Q2

REPORT INFORMATION
  Report Type: Spontaneous
  Country: US (occurrence: None)
  Receive Date: 20230426
  Receipt Date: 20230426
  Transmission Date: 20230721
  Serious: No
  Sender: FDA-Public Use
  Company Number: US-Ultragenyx Pharmaceutical Inc.-US-UGNX-23-00117

PATIENT
  Sex: Male

DRUGS (4)
  1. DOJOLVI [Suspect]
     Active Substance: TRIHEPTANOIN
     Indication: Fatty acid oxidation disorder
     Dosage: 20 ML FOUR TIMES DAILY ORALLY OR BY FEEDING TUBE
     Dates: start: 20221206
  2. DOJOLVI [Suspect]
     Active Substance: TRIHEPTANOIN
     Dosage: 20 ML 2-3 TIMES DAILY ORALLY OR BY FEEDING TUBE
  3. DOJOLVI [Suspect]
     Active Substance: TRIHEPTANOIN
     Dosage: 15 ML FOUR TIMES DAILY, VIA G-TUBE
  4. DOJOLVI [Suspect]
     Active Substance: TRIHEPTANOIN
     Dosage: 10 ML FOUR TIMES DAILY ORALLY OR BY FEEDING TUBE
     Dates: start: 20221206

REACTIONS (3)
  - Illness [Recovered/Resolved]
  - Vomiting [Unknown]
  - Circumstance or information capable of leading to device use error [Unknown]
